FAERS Safety Report 4714143-6 (Version None)
Quarter: 2005Q3

REPORT INFORMATION
  Report Type: 
  Country: None (occurrence: None)
  Receive Date: 20050714
  Receipt Date: 20050714
  Transmission Date: 20060218
  Serious: No
  Sender: FDA-Public Use
  Company Number: None

PATIENT
  Age: 50 Year
  Sex: Female

DRUGS (7)
  1. ZITHROMAX [Suspect]
     Dosage: 500 MG FOLLOWED BY 250 MG Q /DX 4 DAYS
     Dates: start: 20050125, end: 20050129
  2. AUGMENTIN '125' [Suspect]
     Dosage: 875 MG BID
  3. URSODIOL [Concomitant]
  4. ALDACTONE [Concomitant]
  5. LASIX [Concomitant]
  6. POTASSIUM CHLORIDE [Concomitant]
  7. ATARAX [Concomitant]

REACTIONS (6)
  - BLOOD BILIRUBIN INCREASED [None]
  - HEPATIC TRAUMA [None]
  - MALAISE [None]
  - NAUSEA [None]
  - PRURITUS [None]
  - RASH MACULAR [None]
